FAERS Safety Report 6603430-2 (Version None)
Quarter: 2010Q1

REPORT INFORMATION
  Report Type: 
  Country: None (occurrence: None)
  Receive Date: 20100226
  Receipt Date: 20090515
  Transmission Date: 20100710
  Serious: No
  Sender: FDA-Public Use
  Company Number: A0784610A

PATIENT
  Sex: Male

DRUGS (2)
  1. VALTREX [Suspect]
     Route: 048
  2. UNKNOWN [Concomitant]

REACTIONS (3)
  - DRUG INEFFECTIVE [None]
  - HYPERAESTHESIA [None]
  - PAIN [None]
